FAERS Safety Report 15948114 (Version 1)
Quarter: 2019Q1

REPORT INFORMATION
  Report Type: Report from Study
  Country: US (occurrence: US)
  Receive Date: 20190212
  Receipt Date: 20190212
  Transmission Date: 20190417
  Serious: Yes (Other)
  Sender: FDA-Public Use
  Company Number: US-ASTRAZENECA-2019SE21244

PATIENT

DRUGS (3)
  1. OSIMERTINIB. [Suspect]
     Active Substance: OSIMERTINIB
     Indication: NON-SMALL CELL LUNG CANCER
     Route: 048
  2. ERLOTINIB [Concomitant]
     Active Substance: ERLOTINIB
  3. ERLOTINIB [Concomitant]
     Active Substance: ERLOTINIB

REACTIONS (1)
  - Drug resistance [Unknown]
